FAERS Safety Report 7490383-0 (Version None)
Quarter: 2011Q2

REPORT INFORMATION
  Report Type: 
  Country: None (occurrence: None)
  Receive Date: 20110519
  Receipt Date: 20110428
  Transmission Date: 20111010
  Serious: No
  Sender: FDA-Public Use
  Company Number: US-B.I. PHARMACEUTICALS,INC./RIDGEFIELD-2011-BP-03190BP

PATIENT
  Sex: Male

DRUGS (15)
  1. OMEPRAZOLE [Concomitant]
     Indication: GASTROOESOPHAGEAL REFLUX DISEASE
  2. SIMVASTATIN [Concomitant]
  3. TRAVATAN DROPS [Concomitant]
  4. PRADAXA [Suspect]
     Indication: ATRIAL FLUTTER
     Dosage: 300 MG
     Route: 048
     Dates: start: 20110121, end: 20110202
  5. NIACIN [Concomitant]
  6. JANUVIA [Concomitant]
  7. OSTEO BI FLEX [Concomitant]
  8. LECITHIN [Concomitant]
  9. VITAMINS [Concomitant]
  10. ALTACE [Concomitant]
  11. ACTOS [Concomitant]
  12. FISH OIL [Concomitant]
  13. PREVACID [Concomitant]
  14. ASPIRIN [Concomitant]
  15. METFORMIN HCL [Concomitant]

REACTIONS (3)
  - GASTROOESOPHAGEAL REFLUX DISEASE [None]
  - DIARRHOEA [None]
  - INSOMNIA [None]
